FAERS Safety Report 10167599 (Version 2)
Quarter: 2014Q2

REPORT INFORMATION
  Report Type: Spontaneous
  Country: US (occurrence: US)
  Receive Date: 20140512
  Receipt Date: 20140512
  Transmission Date: 20141212
  Serious: Yes (Other)
  Sender: FDA-Public Use
  Company Number: US-PFIZER INC-2014046095

PATIENT
  Age: 33 Year
  Sex: Male

DRUGS (3)
  1. LIDOCAINE HCL [Suspect]
     Indication: NERVE BLOCK
     Dosage: ROPIVACAINE 1% 20 ML MIXED WITH LIDOCAINE 2% WITH EPINEPHRINE (1:200,000) 20 ML
  2. ROPIVACAINE [Suspect]
     Indication: NERVE BLOCK
     Dosage: UNK
  3. EPINEPHRINE [Concomitant]
     Indication: NERVE BLOCK
     Dosage: ROPIVACAINE 1% 20 ML MIXED WITH LIDOCAINE 2% WITH EPINEPHRINE (1:200,000) 20 ML

REACTIONS (1)
  - Horner^s syndrome [Recovered/Resolved]
